FAERS Safety Report 23873854 (Version 2)
Quarter: 2025Q3

REPORT INFORMATION
  Report Type: Report from Study
  Country: CA (occurrence: CA)
  Receive Date: 20240520
  Receipt Date: 20250905
  Transmission Date: 20251020
  Serious: Yes (Other)
  Sender: SANDOZ
  Company Number: CA-002147023-NVSC2021CA188975

PATIENT
  Sex: Female

DRUGS (4)
  1. HYRIMOZ [Suspect]
     Active Substance: ADALIMUMAB-ADAZ
     Indication: Psoriatic arthropathy
     Dosage: 40 MG, Q2W (EVERY TWO WEEKS)
     Route: 058
     Dates: start: 20210621
  2. HYRIMOZ [Suspect]
     Active Substance: ADALIMUMAB-ADAZ
     Dosage: 40 MG, Q2W (EVERY TWO WEEKS)
     Route: 058
     Dates: start: 20240215
  3. HYRIMOZ [Suspect]
     Active Substance: ADALIMUMAB-ADAZ
     Dosage: 40 MG, Q2W (EVERY TWO WEEKS)
     Route: 058
     Dates: start: 202404
  4. LEFLUNOMIDE [Concomitant]
     Active Substance: LEFLUNOMIDE
     Indication: Product used for unknown indication
     Route: 065

REACTIONS (8)
  - Urticaria [Unknown]
  - Herpes zoster [Unknown]
  - Rash [Recovered/Resolved]
  - Erythema [Unknown]
  - Swelling face [Unknown]
  - Ocular hyperaemia [Unknown]
  - Eye swelling [Unknown]
  - Hand-foot-and-mouth disease [Unknown]

NARRATIVE: CASE EVENT DATE: 20210101
